FAERS Safety Report 16770806 (Version 1)
Quarter: 2019Q3

REPORT INFORMATION
  Report Type: Spontaneous
  Country: FR (occurrence: FR)
  Receive Date: 20190904
  Receipt Date: 20190904
  Transmission Date: 20191005
  Serious: Yes (Other)
  Sender: FDA-Public Use
  Company Number: FR-ACCORD-153673

PATIENT
  Age: 72 Year
  Sex: Male

DRUGS (2)
  1. CARBOPLATIN. [Suspect]
     Active Substance: CARBOPLATIN
     Indication: NEOPLASM MALIGNANT
     Dosage: FIRST TREATMENT
     Route: 042
     Dates: start: 20190808, end: 20190808
  2. ALIMTA [Concomitant]
     Active Substance: PEMETREXED DISODIUM
     Indication: CHEMOTHERAPY
     Dosage: FIRST TREATMENT, STRENGTH: 500 MG
     Route: 042
     Dates: start: 20190808, end: 20190808

REACTIONS (2)
  - Infusion related reaction [Recovered/Resolved]
  - Chills [Recovered/Resolved]

NARRATIVE: CASE EVENT DATE: 20190808
